FAERS Safety Report 5917560-1 (Version None)
Quarter: 2008Q4

REPORT INFORMATION
  Report Type: 
  Country: None (occurrence: None)
  Receive Date: 20081010
  Receipt Date: 20081010
  Transmission Date: 20090506
  Serious: No
  Sender: FDA-Public Use
  Company Number: None

PATIENT
  Age: 60 Year
  Sex: Female
  Weight: 77.1115 kg

DRUGS (1)
  1. ARIMIDEX [Suspect]
     Indication: BREAST CANCER
     Dosage: 1 DAILY PO
     Route: 048
     Dates: start: 20061120, end: 20070430

REACTIONS (3)
  - GRIP STRENGTH DECREASED [None]
  - PAIN IN EXTREMITY [None]
  - TRIGGER FINGER [None]
